FAERS Safety Report 5528431-7 (Version None)
Quarter: 2007Q4

REPORT INFORMATION
  Report Type: 
  Country: None (occurrence: None)
  Receive Date: 20071128
  Receipt Date: 20071120
  Transmission Date: 20080405
  Serious: Yes (Other)
  Sender: FDA-Public Use
  Company Number: US-ROXANE LABORATORIES, INC-2007-DE-06848GD

PATIENT
  Age: 41 Year
  Sex: Female

DRUGS (5)
  1. ASPIRIN [Suspect]
     Route: 048
  2. PREDNISONE TAB [Suspect]
     Route: 048
  3. HEPARIN [Suspect]
     Route: 058
  4. PROGESTERONE [Concomitant]
     Indication: SUPPLEMENTATION THERAPY
  5. IMMUNE GLOBULIN INTRAVENOUS (HUMAN) [Concomitant]
     Dosage: 400 MG/KG
     Route: 042

REACTIONS (2)
  - ANTEPARTUM HAEMORRHAGE [None]
  - INTRA-UTERINE DEATH [None]
